FAERS Safety Report 21985592 (Version 3)
Quarter: 2023Q1

REPORT INFORMATION
  Report Type: Spontaneous
  Country: US (occurrence: US)
  Receive Date: 20230213
  Receipt Date: 20230309
  Transmission Date: 20230417
  Serious: No
  Sender: FDA-Public Use
  Company Number: US-002147023-NVSC2023US032074

PATIENT
  Sex: Female

DRUGS (1)
  1. ENTRESTO [Suspect]
     Active Substance: SACUBITRIL\VALSARTAN
     Indication: Product used for unknown indication
     Dosage: 1 DOSAGE FORM, BID
     Route: 065

REACTIONS (9)
  - Muscle twitching [Unknown]
  - Myalgia [Unknown]
  - Insomnia [Unknown]
  - Pain [Unknown]
  - Dermatitis allergic [Unknown]
  - Cough [Unknown]
  - Dizziness [Unknown]
  - Hypotension [Unknown]
  - Drug ineffective [Unknown]
